FAERS Safety Report 7216351-1 (Version None)
Quarter: 2011Q1

REPORT INFORMATION
  Report Type: 
  Country: None (occurrence: None)
  Receive Date: 20110107
  Receipt Date: 20110106
  Transmission Date: 20110831
  Serious: Yes (Hospitalization)
  Sender: FDA-Public Use
  Company Number: CA-ABBOTT-10P-028-0693312-00

PATIENT
  Sex: Female
  Weight: 72.64 kg

DRUGS (1)
  1. HUMIRA [Suspect]
     Indication: CROHN'S DISEASE
     Route: 058
     Dates: start: 20100826

REACTIONS (6)
  - THROAT TIGHTNESS [None]
  - CROHN'S DISEASE [None]
  - PERICARDITIS [None]
  - DYSPNOEA [None]
  - ILL-DEFINED DISORDER [None]
  - BLOOD TEST ABNORMAL [None]
